FAERS Safety Report 9251830 (Version 1)
Quarter: 2013Q1

REPORT INFORMATION
  Report Type: Spontaneous
  Country: US (occurrence: None)
  Receive Date: 20130305
  Receipt Date: 20130305
  Transmission Date: 20140127
  Serious: Yes (Other)
  Sender: FDA-Public Use
  Company Number: 163-21880-12092562

PATIENT
  Age: 65 Year
  Sex: Male
  Weight: 138 kg

DRUGS (8)
  1. REVLIMID (LENALIDOMIDE) (CAPSULES) [Suspect]
     Indication: MYELODYSPLASTIC SYNDROME
     Dosage: 10 MG, 1 IN 1 D, PO
     Route: 048
     Dates: start: 20120907, end: 20120917
  2. ALLOPURINOL [Suspect]
  3. GLYBURIDE (GLIBENCLAMIDE) [Suspect]
  4. METFORMIN (METFORMIN) [Suspect]
  5. FENOFIBRATE (FENOFIBRATE) (FENOFIBRATE) [Suspect]
  6. PHENTERMINE HCL [Suspect]
  7. NAPROXEN (NAPROXEN) [Suspect]
  8. AVODART (DUTASTERIDE) CAPSULES [Suspect]

REACTIONS (1)
  - Thrombocytopenia [None]
